FAERS Safety Report 5718177-4 (Version None)
Quarter: 2008Q2

REPORT INFORMATION
  Report Type: 
  Country: None (occurrence: None)
  Receive Date: 20080425
  Receipt Date: 20080417
  Transmission Date: 20081010
  Serious: Yes (Other)
  Sender: FDA-Public Use
  Company Number: GB-ROCHE-559366

PATIENT
  Sex: Female
  Weight: 133.4 kg

DRUGS (3)
  1. ORLISTAT [Suspect]
     Indication: OBESITY
     Route: 048
     Dates: start: 20080109, end: 20080417
  2. ORLISTAT [Suspect]
     Route: 048
     Dates: start: 20070326, end: 20070420
  3. ISOSORBIDE DINITRATE [Concomitant]
     Indication: HYPERTENSION
     Route: 048

REACTIONS (2)
  - ABDOMINAL STRANGULATED HERNIA [None]
  - BREAST CANCER [None]
